FAERS Safety Report 24590770 (Version 1)
Quarter: 2024Q4

REPORT INFORMATION
  Report Type: Spontaneous
  Country: US (occurrence: US)
  Receive Date: 20241107
  Receipt Date: 20241107
  Transmission Date: 20250114
  Serious: Yes (Other)
  Sender: JOHNSON AND JOHNSON
  Company Number: US-JNJFOC-20241085301

PATIENT
  Sex: Female

DRUGS (4)
  1. SPRAVATO [Suspect]
     Active Substance: ESKETAMINE
     Indication: Depression
     Dosage: ^56 MG, 1 TOTAL DOSE^
     Dates: start: 20210910, end: 20210910
  2. SPRAVATO [Suspect]
     Active Substance: ESKETAMINE
     Dosage: ^84 MG, 51 TOTAL DOSES^
     Dates: start: 20210917, end: 20230331
  3. SPRAVATO [Suspect]
     Active Substance: ESKETAMINE
     Dosage: ^56 MG, 1 TOTAL DOSE^
     Dates: start: 20230414, end: 20230414
  4. SPRAVATO [Suspect]
     Active Substance: ESKETAMINE
     Dosage: ^84 MG, 41 TOTAL DOSES^ PATIENT ALSO HAD A DOSE ON 01-NOV-2024
     Dates: start: 20230428, end: 20241025

REACTIONS (5)
  - Suicidal ideation [Unknown]
  - Sinus congestion [Unknown]
  - Seasonal allergy [Unknown]
  - Rhinitis [Unknown]
  - Depression [Unknown]
